FAERS Safety Report 10896366 (Version 1)
Quarter: 2015Q1

REPORT INFORMATION
  Report Type: Spontaneous
  Country: BR (occurrence: BR)
  Receive Date: 20150309
  Receipt Date: 20150309
  Transmission Date: 20150721
  Serious: Yes (Life-Threatening)
  Sender: FDA-Public Use
  Company Number: BR-ACCORD-029085

PATIENT
  Age: 68 Year
  Sex: Female
  Weight: 48.9 kg

DRUGS (5)
  1. DIFENIDRIN [Concomitant]
     Active Substance: DIPHENHYDRAMINE
     Indication: PROPHYLAXIS
     Route: 042
     Dates: start: 20150219, end: 20150219
  2. PACLITAXEL/PACLITAXEL LIPOSOME [Suspect]
     Active Substance: PACLITAXEL
     Indication: BREAST NEOPLASM
     Dosage: STRENGTH 300 MG, 26-JAN-2015 (8 CYCLE) + 19-FEB-2015(9TH CYCLE)
     Route: 042
     Dates: start: 20150126
  3. NAUSEDRON [Concomitant]
     Active Substance: ONDANSETRON HYDROCHLORIDE
     Indication: PROPHYLAXIS
     Dosage: 1 AMPOULE
     Dates: start: 20150219, end: 20150219
  4. DEXAMETHASONE. [Concomitant]
     Active Substance: DEXAMETHASONE
     Indication: PROPHYLAXIS
     Route: 042
     Dates: start: 20150219, end: 20150219
  5. RANITIDINE [Concomitant]
     Active Substance: RANITIDINE\RANITIDINE HYDROCHLORIDE
     Indication: PROPHYLAXIS
     Dosage: 1 AMPOULE
     Route: 042
     Dates: start: 20150219, end: 20150219

REACTIONS (4)
  - Erythema [Recovered/Resolved]
  - Grunting [Recovered/Resolved]
  - Respiratory distress [Recovered/Resolved]
  - Tachycardia [Recovered/Resolved]

NARRATIVE: CASE EVENT DATE: 20150126
